FAERS Safety Report 5514131-6 (Version None)
Quarter: 2007Q4

REPORT INFORMATION
  Report Type: 
  Country: None (occurrence: None)
  Receive Date: 20071113
  Receipt Date: 20071108
  Transmission Date: 20080405
  Serious: Yes (Hospitalization)
  Sender: FDA-Public Use
  Company Number: US-BRISTOL-MYERS SQUIBB COMPANY-13975693

PATIENT
  Age: 51 Year
  Sex: Male
  Weight: 128 kg

DRUGS (16)
  1. CISPLATIN [Suspect]
     Indication: NEOPLASM
     Route: 042
     Dates: start: 20071024, end: 20071024
  2. AG-013736 [Suspect]
     Indication: NEOPLASM
     Route: 048
     Dates: start: 20071020, end: 20071029
  3. GEMCITABINE [Suspect]
     Indication: NEOPLASM
     Dosage: ON DAY 1+8 EVERY 3 WEEKS.
     Route: 042
     Dates: start: 20071024, end: 20071024
  4. PROTONIX [Concomitant]
     Route: 048
     Dates: start: 20061001
  5. PROCHLORPERAZINE EDISYLATE [Concomitant]
     Route: 048
  6. LORAZEPAM [Concomitant]
     Route: 048
  7. ANZEMET [Concomitant]
     Route: 048
     Dates: start: 20070701
  8. CREON [Concomitant]
     Route: 048
  9. METOCLOPRAMIDE HCL [Concomitant]
     Route: 048
     Dates: start: 20070927
  10. OXYCODONE HCL [Concomitant]
     Route: 048
  11. IBUPROFEN [Concomitant]
     Route: 048
  12. ACETAMINOPHEN [Concomitant]
     Route: 048
  13. DOCUSATE [Concomitant]
     Route: 048
  14. VITAMIN CAP [Concomitant]
     Route: 048
  15. LYCOPENE [Concomitant]
     Route: 048
  16. HERBAL MIXTURE [Concomitant]
     Route: 048
     Dates: start: 20071025

REACTIONS (2)
  - ABDOMINAL PAIN [None]
  - DEHYDRATION [None]
